FAERS Safety Report 16019138 (Version 3)
Quarter: 2019Q1

REPORT INFORMATION
  Report Type: Spontaneous
  Country: US (occurrence: US)
  Receive Date: 20190228
  Receipt Date: 20190314
  Transmission Date: 20190418
  Serious: No
  Sender: FDA-Public Use
  Company Number: US-PFIZER INC-2019037572

PATIENT
  Age: 7 Year
  Sex: Male

DRUGS (7)
  1. GENOTROPIN [Suspect]
     Active Substance: SOMATROPIN
     Dosage: UNK
  2. GENOTROPIN [Suspect]
     Active Substance: SOMATROPIN
     Indication: BLOOD GROWTH HORMONE
     Dosage: 0.6 MG, DAILY
     Route: 058
     Dates: start: 20190106
  3. CYPROHEPTADINE. [Concomitant]
     Active Substance: CYPROHEPTADINE
     Indication: APPETITE DISORDER
     Dosage: UNK (4 MG TABLET. TAKES 1/2 TABLET IN THE MORNING AND 1 TABLET AT NIGHT BY MOUTH.)
     Route: 048
  4. GENOTROPIN [Suspect]
     Active Substance: SOMATROPIN
     Dosage: 0.7 MG, DAILY
  5. GENOTROPIN [Suspect]
     Active Substance: SOMATROPIN
     Dosage: 0.6 MG, DAILY
     Dates: start: 20190106
  6. GENOTROPIN [Suspect]
     Active Substance: SOMATROPIN
     Dosage: 0.6 MG, DAILY
     Route: 058
     Dates: start: 20190107
  7. GENOTROPIN [Suspect]
     Active Substance: SOMATROPIN
     Indication: GROWTH HORMONE DEFICIENCY
     Dosage: 0.6 MG, DAILY
     Route: 058
     Dates: start: 20190106

REACTIONS (5)
  - Product dose omission [Not Recovered/Not Resolved]
  - Device issue [Unknown]
  - Drug ineffective [Unknown]
  - Wrong technique in device usage process [Unknown]
  - Incorrect dose administered by device [Recovered/Resolved]

NARRATIVE: CASE EVENT DATE: 20190122
